FAERS Safety Report 12281575 (Version 6)
Quarter: 2016Q3

REPORT INFORMATION
  Report Type: Spontaneous
  Country: ZA (occurrence: ZA)
  Receive Date: 20160419
  Receipt Date: 20160727
  Transmission Date: 20161109
  Serious: Yes (Other)
  Sender: FDA-Public Use
  Company Number: ZA-SUN PHARMACEUTICAL INDUSTRIES LTD-2016RR-114665

PATIENT
  Age: 6 Year
  Sex: Female
  Weight: 20.6 kg

DRUGS (11)
  1. ACETAZOLAMIDE. [Suspect]
     Active Substance: ACETAZOLAMIDE
     Indication: INTRACRANIAL PRESSURE INCREASED
     Dosage: 30 MG/KG, EVERY 8 HOURS
     Route: 065
  2. TERIZIDONE [Concomitant]
     Active Substance: TERIZIDONE
     Indication: TUBERCULOSIS
     Dosage: 15-20 MG/KG ONCE DAILY
     Route: 065
  3. LEVOFLOXACIN. [Suspect]
     Active Substance: LEVOFLOXACIN
     Indication: TUBERCULOSIS
     Dosage: 15-20 MG/KG ONCE DAILY
     Route: 065
  4. ETHAMBUTOL [Concomitant]
     Active Substance: ETHAMBUTOL HYDROCHLORIDE
     Indication: TUBERCULOSIS
     Dosage: 20-25 MG/KG ONCE DAILY
     Route: 065
  5. PYRIDOXINE [Concomitant]
     Active Substance: PYRIDOXINE
     Indication: TUBERCULOSIS
     Dosage: 50 MG, UNK
     Route: 065
  6. RIFAMPICIN [Suspect]
     Active Substance: RIFAMPIN
     Indication: TUBERCULOSIS
     Route: 065
  7. PYRAZINAMIDE. [Concomitant]
     Active Substance: PYRAZINAMIDE
     Indication: TUBERCULOSIS
     Dosage: 30-40 MG/KG ONCE DAILY
     Route: 065
  8. ETHIONAMIDE [Concomitant]
     Active Substance: ETHIONAMIDE
     Indication: TUBERCULOSIS
     Dosage: 15-20 MG/KG ONCE DAILY
     Route: 065
  9. ISONIAZID. [Concomitant]
     Active Substance: ISONIAZID
     Indication: TUBERCULOSIS
     Dosage: 10-15 MG/KG/DAY ONCE DAILY
     Route: 065
  10. AMIKACIN [Concomitant]
     Active Substance: AMIKACIN
     Indication: TUBERCULOSIS
     Route: 065
  11. ISONIAZID. [Concomitant]
     Active Substance: ISONIAZID
     Dosage: 15-20 MG/KG; ONCE DAILY
     Route: 065

REACTIONS (8)
  - Intracranial pressure increased [Recovered/Resolved]
  - Metabolic acidosis [Unknown]
  - CSF pressure increased [Unknown]
  - Papilloedema [Recovered/Resolved]
  - Drug resistance [Unknown]
  - Vomiting [Unknown]
  - Malaise [Unknown]
  - Drug administered to patient of inappropriate age [Unknown]

NARRATIVE: CASE EVENT DATE: 20140918
